FAERS Safety Report 7661952 (Version 6)
Quarter: 2013Q4

REPORT INFORMATION
  Report Type: Spontaneous
  Country: IT (occurrence: IT)
  Receive Date: 20101109
  Receipt Date: 20131211
  Transmission Date: 20140711
  Serious: Yes (Hospitalization, Other)
  Sender: FDA-Public Use
  Company Number: IT-BIOGENIDEC-2010BI036517

PATIENT
  Age: 45 Year
  Sex: Male

DRUGS (1)
  1. TYSABRI [Suspect]
     Indication: PRODUCT USED FOR UNKNOWN INDICATION
     Route: 042
     Dates: start: 20090506, end: 20100816

REACTIONS (2)
  - Progressive multifocal leukoencephalopathy [Not Recovered/Not Resolved]
  - Immune reconstitution inflammatory syndrome [Unknown]
